FAERS Safety Report 5747586-2 (Version None)
Quarter: 2008Q2

REPORT INFORMATION
  Report Type: 
  Country: None (occurrence: None)
  Receive Date: 20080523
  Receipt Date: 20080513
  Transmission Date: 20081010
  Serious: Yes (Hospitalization)
  Sender: FDA-Public Use
  Company Number: DE-GENENTECH-250644

PATIENT
  Sex: Female
  Weight: 52.7 kg

DRUGS (3)
  1. BEVACIZUMAB [Suspect]
     Indication: OVARIAN CANCER
     Dosage: 395 MG, Q3W
     Route: 042
     Dates: start: 20070619
  2. CARBOPLATIN [Suspect]
     Indication: OVARIAN CANCER
     Dosage: 620 MG, UNK
     Route: 042
     Dates: start: 20070619
  3. PACLITAXEL [Suspect]
     Indication: DRUG USE FOR UNKNOWN INDICATION
     Dosage: 273 MG, UNK
     Route: 042
     Dates: start: 20070619

REACTIONS (1)
  - VAGINAL PERFORATION [None]
